FAERS Safety Report 6071962-4 (Version None)
Quarter: 2009Q1

REPORT INFORMATION
  Report Type: 
  Country: None (occurrence: None)
  Receive Date: 20090205
  Receipt Date: 20090205
  Transmission Date: 20090719
  Serious: Yes (Hospitalization)
  Sender: FDA-Public Use
  Company Number: None

PATIENT
  Age: 17 Year
  Sex: Female
  Weight: 69.3 kg

DRUGS (1)
  1. SEASONIQUE [Suspect]
     Dosage: 1 TABLET DAILY PO
     Route: 048

REACTIONS (2)
  - BACK PAIN [None]
  - THROMBOSIS [None]
